FAERS Safety Report 26119046 (Version 1)
Quarter: 2025Q4

REPORT INFORMATION
  Report Type: Spontaneous
  Country: CH (occurrence: CH)
  Receive Date: 20251204
  Receipt Date: 20251204
  Transmission Date: 20260117
  Serious: Yes (Congenital Anomaly, Other)
  Sender: ROCHE
  Company Number: None

PATIENT
  Sex: Male
  Weight: 0.62 kg

DRUGS (3)
  1. MABTHERA [Suspect]
     Active Substance: RITUXIMAB
     Indication: Product used for unknown indication
     Route: 064
     Dates: start: 20221019, end: 20221019
  2. MABTHERA [Suspect]
     Active Substance: RITUXIMAB
     Route: 064
     Dates: start: 20221101, end: 20221101
  3. MABTHERA [Suspect]
     Active Substance: RITUXIMAB
     Route: 064
     Dates: start: 20230908, end: 20230908

REACTIONS (17)
  - Staphylococcus test positive [Recovered/Resolved]
  - Anaemia neonatal [Recovered/Resolved]
  - Adrenal haemorrhage [Recovered/Resolved]
  - Bronchopulmonary dysplasia [Recovered/Resolved]
  - Neonatal respiratory distress syndrome [Recovered/Resolved]
  - Neonatal pneumothorax [Recovered/Resolved]
  - Foetal exposure during pregnancy [Unknown]
  - Inguinal hernia [Recovered/Resolved]
  - Thrombocytopenia neonatal [Recovered/Resolved]
  - Thrombosis [Recovered/Resolved]
  - Neonatal hyperglycaemia [Recovered/Resolved]
  - Newborn persistent pulmonary hypertension [Recovered/Resolved]
  - Retinopathy of prematurity [Recovered/Resolved]
  - Renal failure [Recovered/Resolved]
  - Premature baby [Recovered/Resolved]
  - Infantile apnoea [Recovered/Resolved]
  - Intraventricular haemorrhage neonatal [Recovered/Resolved]

NARRATIVE: CASE EVENT DATE: 20231031
